FAERS Safety Report 23655538 (Version 1)
Quarter: 2024Q1

REPORT INFORMATION
  Report Type: Spontaneous
  Country: US (occurrence: None)
  Receive Date: 20240321
  Receipt Date: 20240321
  Transmission Date: 20240410
  Serious: No
  Sender: FDA-Public Use
  Company Number: 2024A061260

PATIENT
  Age: 26132 Day
  Sex: Male

DRUGS (1)
  1. IMFINZI [Suspect]
     Active Substance: DURVALUMAB
     Indication: Non-small cell lung cancer stage II
     Dosage: UNKNOWN
     Dates: start: 20231201

REACTIONS (5)
  - Joint swelling [Unknown]
  - Drug intolerance [Unknown]
  - Neuropathy peripheral [Unknown]
  - Sensory loss [Unknown]
  - Product dose omission issue [Unknown]

NARRATIVE: CASE EVENT DATE: 20240209
